FAERS Safety Report 5527837-X (Version None)
Quarter: 2007Q4

REPORT INFORMATION
  Report Type: 
  Country: None (occurrence: None)
  Receive Date: 20071128
  Receipt Date: 20071121
  Transmission Date: 20080405
  Serious: Yes (Hospitalization)
  Sender: FDA-Public Use
  Company Number: A0689601A

PATIENT
  Age: 60 Year
  Sex: Male

DRUGS (7)
  1. TOPOTECAN HYDROCHLORIDE [Suspect]
     Indication: NEOPLASM
     Dosage: 1.2MGM2 CYCLIC
     Route: 042
     Dates: start: 20070830
  2. STUDY MEDICATION [Suspect]
     Indication: NEOPLASM
     Dosage: 10MG CYCLIC
     Route: 048
     Dates: start: 20070907
  3. DIMETICONE [Concomitant]
  4. OMEPRAZOLE [Concomitant]
     Dosage: 40MG PER DAY
  5. GEMFIBROZIL [Concomitant]
     Dosage: 600MG TWICE PER DAY
  6. TELMISARTAN [Concomitant]
     Dosage: 80MG PER DAY
  7. MULTI-VITAMIN [Concomitant]
     Dosage: 1TAB PER DAY

REACTIONS (13)
  - EPISTAXIS [None]
  - FLANK PAIN [None]
  - HAEMATURIA [None]
  - HAEMOGLOBIN DECREASED [None]
  - HEADACHE [None]
  - NEUTROPHIL TOXIC GRANULATION PRESENT [None]
  - PLATELET COUNT DECREASED [None]
  - RHINITIS [None]
  - SINUS CONGESTION [None]
  - SINUS HEADACHE [None]
  - SINUSITIS [None]
  - TOOTHACHE [None]
  - URINARY TRACT INFECTION [None]
